FAERS Safety Report 7034053-1 (Version None)
Quarter: 2010Q4

REPORT INFORMATION
  Report Type: 
  Country: None (occurrence: None)
  Receive Date: 20101006
  Receipt Date: 20100928
  Transmission Date: 20110411
  Serious: Yes (Other)
  Sender: FDA-Public Use
  Company Number: DSA_44033_2010

PATIENT
  Sex: Female

DRUGS (6)
  1. BUPROPION HYDROCHLORIDE [Suspect]
     Indication: DEPRESSION
     Dosage: (300 MG QD)
     Dates: end: 20100730
  2. TRAZODONE HCL [Concomitant]
  3. SINEMET [Concomitant]
  4. OXAZEPAM [Concomitant]
  5. NEUPRO [Concomitant]
  6. ACTONEL [Concomitant]

REACTIONS (2)
  - BLISTER [None]
  - TOXIC EPIDERMAL NECROLYSIS [None]
